FAERS Safety Report 13295968 (Version 1)
Quarter: 2017Q1

REPORT INFORMATION
  Report Type: Report from Study
  Country: CA (occurrence: CA)
  Receive Date: 20170303
  Receipt Date: 20170303
  Transmission Date: 20170428
  Serious: Yes (Hospitalization, Other)
  Sender: FDA-Public Use
  Company Number: CA-B.I. PHARMACEUTICALS,INC./RIDGEFIELD-2017-BI-010627

PATIENT
  Age: 84 Year
  Sex: Male
  Weight: 100 kg

DRUGS (1)
  1. PRADAXA [Suspect]
     Active Substance: DABIGATRAN ETEXILATE MESYLATE
     Indication: ATRIAL FIBRILLATION
     Route: 065

REACTIONS (5)
  - Sternal fracture [Unknown]
  - Haemothorax [Unknown]
  - Injury [Unknown]
  - Mediastinal haematoma [Unknown]
  - Road traffic accident [Unknown]

NARRATIVE: CASE EVENT DATE: 20150821
